FAERS Safety Report 7919333-7 (Version None)
Quarter: 2011Q4

REPORT INFORMATION
  Report Type: 
  Country: None (occurrence: None)
  Receive Date: 20111117
  Receipt Date: 20111107
  Transmission Date: 20120403
  Serious: Yes (Hospitalization, Other)
  Sender: FDA-Public Use
  Company Number: AR-JNJFOC-20110912278

PATIENT
  Sex: Female
  Weight: 68.2 kg

DRUGS (11)
  1. FOLIC ACID [Concomitant]
     Route: 048
     Dates: start: 20101028
  2. ALL OTHER THERAPEUTIC PRODUCT [Concomitant]
     Route: 048
     Dates: start: 20110610
  3. CLONAZEPAM [Concomitant]
     Route: 048
     Dates: start: 20100627
  4. METHOTREXATE [Concomitant]
     Route: 048
     Dates: start: 20101028
  5. GOLIMUMAB [Suspect]
     Route: 058
     Dates: start: 20110901
  6. METHOTREXATE [Concomitant]
     Route: 048
     Dates: start: 20100823, end: 20101008
  7. FOLIC ACID [Concomitant]
     Route: 048
     Dates: start: 20100823, end: 20101008
  8. METHOTREXATE [Suspect]
     Indication: RHEUMATOID ARTHRITIS
     Route: 048
     Dates: start: 20070416, end: 20110922
  9. GOLIMUMAB [Suspect]
     Indication: RHEUMATOID ARTHRITIS
     Route: 058
     Dates: start: 20070416
  10. HALOPERIDOL [Concomitant]
     Route: 048
     Dates: start: 20080402
  11. DIAZEPAM [Concomitant]
     Route: 048
     Dates: start: 20080402

REACTIONS (2)
  - MATERNAL EXPOSURE DURING PREGNANCY [None]
  - METRORRHAGIA [None]
